FAERS Safety Report 9576442 (Version 1)
Quarter: 2013Q4

REPORT INFORMATION
  Report Type: Spontaneous
  Country: US (occurrence: US)
  Receive Date: 20131001
  Receipt Date: 20131001
  Transmission Date: 20140711
  Serious: No
  Sender: FDA-Public Use
  Company Number: US-AMGEN-USASP2013003277

PATIENT
  Age: 64 Year
  Sex: Female
  Weight: 90.7 kg

DRUGS (14)
  1. ENBREL [Suspect]
     Indication: PSORIATIC ARTHROPATHY
     Dosage: 50 MG, 2 TIMES/WK
     Route: 058
  2. HUMALOG [Concomitant]
     Dosage: 100 ML, UNK
     Route: 058
  3. JANUVIA [Concomitant]
     Dosage: 25 MG, UNK
     Route: 048
  4. HUMIRA [Concomitant]
     Indication: PSORIASIS
     Dosage: UNK
     Route: 058
  5. LANTUS [Concomitant]
     Dosage: 100 ML, UNK
     Route: 058
  6. OMEPRAZOLE [Concomitant]
     Dosage: 10 MG, UNK
     Route: 048
  7. TAGAMET                            /00397401/ [Concomitant]
     Dosage: 300 MG, UNK
     Route: 048
  8. AMITRIPTYLIN [Concomitant]
     Dosage: 10 MG, UNK
     Route: 048
  9. ACTOS [Concomitant]
     Dosage: 15 MG, UNK
     Route: 048
  10. MULTIVITAMINS, PLAIN [Concomitant]
     Dosage: UNK
     Route: 048
  11. CALCIUM +VIT D [Concomitant]
     Dosage: UNK
     Route: 048
  12. MAGNESIUM OXIDE [Concomitant]
     Dosage: 250 MG, UNK
     Route: 048
  13. VITAMIN B [Concomitant]
     Dosage: UNK
     Route: 048
  14. VITAMIN D3 [Concomitant]
     Dosage: 5000 UNIT, UNK
     Route: 048

REACTIONS (2)
  - Drug ineffective [Unknown]
  - Psoriasis [Unknown]
